FAERS Safety Report 10009863 (Version 2)
Quarter: 2014Q1

REPORT INFORMATION
  Report Type: Spontaneous
  Country: US (occurrence: US)
  Receive Date: 20140312
  Receipt Date: 20140312
  Transmission Date: 20141002
  Serious: No
  Sender: FDA-Public Use
  Company Number: US-INCYTE CORPORATION-2012IN002615

PATIENT
  Age: 59 Year
  Sex: Female
  Weight: 69.39 kg

DRUGS (6)
  1. JAKAFI [Suspect]
     Indication: MYELOFIBROSIS
     Dosage: 15 MG, BID
     Route: 048
     Dates: start: 20120817
  2. ASPIRIN [Concomitant]
  3. METFORMIN [Concomitant]
  4. OMEPRAZOLE [Concomitant]
  5. TRICOR [Concomitant]
  6. LIPITOR [Concomitant]

REACTIONS (7)
  - Lactose intolerance [Unknown]
  - Condition aggravated [Unknown]
  - Muscular weakness [Unknown]
  - Dyspnoea [Unknown]
  - Fatigue [Recovering/Resolving]
  - Hyperhidrosis [Recovering/Resolving]
  - Weight increased [Recovering/Resolving]
